FAERS Safety Report 12501960 (Version 1)
Quarter: 2016Q2

REPORT INFORMATION
  Report Type: Report from Study
  Country: US (occurrence: US)
  Receive Date: 20160627
  Receipt Date: 20160627
  Transmission Date: 20160815
  Serious: Yes (Hospitalization)
  Sender: FDA-Public Use
  Company Number: US-TEVA-669422USA

PATIENT
  Age: 36 Year
  Sex: Female

DRUGS (1)
  1. COPAXONE [Suspect]
     Active Substance: GLATIRAMER ACETATE
     Indication: MULTIPLE SCLEROSIS
     Route: 058
     Dates: start: 20160308, end: 20160610

REACTIONS (6)
  - Chest pain [Recovered/Resolved]
  - Injection site reaction [Recovered/Resolved]
  - Vascular insufficiency [Recovered/Resolved]
  - Drug hypersensitivity [Recovered/Resolved]
  - Burning sensation [Recovered/Resolved]
  - Chills [Recovered/Resolved]

NARRATIVE: CASE EVENT DATE: 20160610
